FAERS Safety Report 22595232 (Version 1)
Quarter: 2023Q2

REPORT INFORMATION
  Report Type: Report from Study
  Country: IT (occurrence: IT)
  Receive Date: 20230613
  Receipt Date: 20230613
  Transmission Date: 20230722
  Serious: Yes (Hospitalization)
  Sender: FDA-Public Use
  Company Number: IT-AMGEN INC.-ITANI2023095271

PATIENT
  Age: 75 Year
  Sex: Male

DRUGS (10)
  1. BEVACIZUMAB [Suspect]
     Active Substance: BEVACIZUMAB
     Indication: Diabetic retinal oedema
     Dosage: UNK
     Dates: start: 20220908, end: 20220908
  2. TOUJEO [Concomitant]
     Active Substance: INSULIN GLARGINE
     Dosage: UNK
  3. METFORMIN HYDROCHLORIDE [Concomitant]
     Active Substance: METFORMIN HYDROCHLORIDE
     Route: 048
  4. NOVORAPID [Concomitant]
     Active Substance: INSULIN ASPART
     Dosage: U.I. 6-8-8
  5. AMLODIPINE\INDAPAMIDE\PERINDOPRIL [Concomitant]
     Active Substance: AMLODIPINE\INDAPAMIDE\PERINDOPRIL
  6. SYNJARDY [Concomitant]
     Active Substance: EMPAGLIFLOZIN\METFORMIN HYDROCHLORIDE
     Dosage: 5 MG DUE VOLTE AL GIORNO
  7. FENOFIBRATE [Concomitant]
     Active Substance: FENOFIBRATE
     Route: 048
  8. FENOFIBRATE [Concomitant]
     Active Substance: FENOFIBRATE
     Route: 048
  9. XANAX [Concomitant]
     Active Substance: ALPRAZOLAM
  10. ELIQUIS [Concomitant]
     Active Substance: APIXABAN
     Route: 048

REACTIONS (2)
  - Endophthalmitis [Recovered/Resolved with Sequelae]
  - Off label use [Unknown]

NARRATIVE: CASE EVENT DATE: 20220908
